FAERS Safety Report 12227781 (Version 1)
Quarter: 2016Q2

REPORT INFORMATION
  Report Type: Spontaneous
  Country: FR (occurrence: FR)
  Receive Date: 20160401
  Receipt Date: 20160401
  Transmission Date: 20160815
  Serious: Yes (Hospitalization)
  Sender: FDA-Public Use
  Company Number: FR-ROCHE-1735233

PATIENT
  Age: 62 Year
  Sex: Male

DRUGS (12)
  1. CELLCEPT [Suspect]
     Active Substance: MYCOPHENOLATE MOFETIL\MYCOPHENOLATE MOFETIL HYDROCHLORIDE
     Indication: PROPHYLAXIS AGAINST TRANSPLANT REJECTION
     Route: 048
     Dates: start: 201412, end: 201509
  2. CERTICAN [Concomitant]
     Active Substance: EVEROLIMUS
     Dosage: 4 TABLETS TWICE DAILY
     Route: 065
  3. SECTRAL [Concomitant]
     Active Substance: ACEBUTOLOL HYDROCHLORIDE
     Route: 065
  4. BARACLUDE [Concomitant]
     Active Substance: ENTECAVIR
     Route: 065
  5. NEURONTIN [Concomitant]
     Active Substance: GABAPENTIN
     Route: 065
  6. LASILIX [Concomitant]
     Active Substance: FUROSEMIDE
     Route: 065
  7. TEGRETOL LP [Concomitant]
     Active Substance: CARBAMAZEPINE
     Route: 065
  8. KARDEGIC [Concomitant]
     Active Substance: ASPIRIN LYSINE
     Route: 065
  9. ODRIK [Concomitant]
     Active Substance: TRANDOLAPRIL
  10. FLUDEX (FRANCE) [Concomitant]
     Active Substance: INDAPAMIDE
     Route: 065
  11. ADVAGRAF [Suspect]
     Active Substance: TACROLIMUS
     Indication: PROPHYLAXIS AGAINST TRANSPLANT REJECTION
     Route: 048
  12. CORTANCYL [Concomitant]
     Active Substance: PREDNISONE
     Route: 048

REACTIONS (1)
  - Renal failure [Not Recovered/Not Resolved]

NARRATIVE: CASE EVENT DATE: 201508
